FAERS Safety Report 25476999 (Version 1)
Quarter: 2025Q2

REPORT INFORMATION
  Report Type: Spontaneous
  Country: US (occurrence: US)
  Receive Date: 20250625
  Receipt Date: 20250625
  Transmission Date: 20250717
  Serious: Yes (Other)
  Sender: GE HEALTHCARE
  Company Number: US-GE HEALTHCARE-2025CSU007988

PATIENT
  Age: 82 Year
  Sex: Female
  Weight: 60.317 kg

DRUGS (5)
  1. VIZAMYL [Suspect]
     Active Substance: FLUTEMETAMOL F-18
     Indication: Diagnostic procedure
     Route: 042
     Dates: start: 20250616
  2. ALENDRONATE [Concomitant]
     Active Substance: ALENDRONATE SODIUM
  3. SIMVASTATIN [Concomitant]
     Active Substance: SIMVASTATIN
  4. LOSARTAN [Concomitant]
     Active Substance: LOSARTAN
  5. ESCITALOPRAM [Concomitant]
     Active Substance: ESCITALOPRAM OXALATE

REACTIONS (2)
  - Dyspnoea [Recovered/Resolved]
  - Nausea [Recovered/Resolved]

NARRATIVE: CASE EVENT DATE: 20250616
